FAERS Safety Report 8397916-0 (Version None)
Quarter: 2012Q2

REPORT INFORMATION
  Report Type: 
  Country: None (occurrence: None)
  Receive Date: 20120531
  Receipt Date: 20120525
  Transmission Date: 20120825
  Serious: Yes (Death)
  Sender: FDA-Public Use
  Company Number: PHEH2012US010971

PATIENT
  Sex: Male

DRUGS (10)
  1. GLEEVEC [Suspect]
     Dosage: 400 MG, DAILY
     Route: 048
  2. LISINOPRIL [Concomitant]
  3. MULTI-VITAMINS [Concomitant]
  4. ACTOS [Concomitant]
  5. FLONASE [Concomitant]
  6. PROTONIX [Concomitant]
  7. VYTORIN [Concomitant]
  8. ZYRTEC [Concomitant]
  9. PLAVIX [Concomitant]
  10. COREG [Concomitant]

REACTIONS (1)
  - DEATH [None]
